FAERS Safety Report 7425955-2 (Version None)
Quarter: 2011Q2

REPORT INFORMATION
  Report Type: 
  Country: None (occurrence: None)
  Receive Date: 20110420
  Receipt Date: 20110331
  Transmission Date: 20111010
  Serious: Yes (Death, Other)
  Sender: FDA-Public Use
  Company Number: US-BAYER-201041822NA

PATIENT
  Age: 75 Year
  Sex: Male
  Weight: 65.76 kg

DRUGS (33)
  1. TRASYLOL [Suspect]
     Indication: MITRAL VALVE REPLACEMENT
     Dosage: 50 ML, Q1HR
     Dates: start: 20070517, end: 20070517
  2. RABEPRAZOLE SODIUM [Concomitant]
     Dosage: 20 MG, QD
     Route: 048
  3. TRASYLOL [Suspect]
     Indication: CARDIAC ABLATION
  4. POTASSIUM CHLORIDE [Concomitant]
     Dosage: 10 MG, QD
     Route: 048
  5. GLIMEPIRIDE [Concomitant]
     Dosage: 4 MG, BID
     Route: 048
  6. CEFUROXIME [Concomitant]
     Dosage: 1.5 G, X2
     Route: 042
     Dates: start: 20070517, end: 20070517
  7. PACKED RED BLOOD CELLS [Concomitant]
     Dosage: 2 U, UNK
     Dates: start: 20070517
  8. JANUVIA [Concomitant]
     Dosage: 100 MG, QD
     Route: 048
  9. SCOPOLAMINE [Concomitant]
     Dosage: 0.4 MG, UNK
     Route: 042
     Dates: start: 20070517, end: 20070517
  10. MORPHINE [Concomitant]
     Dosage: 10 MG, UNK
     Route: 042
     Dates: start: 20070517, end: 20070517
  11. WARFARIN [Concomitant]
     Route: 048
  12. LISINOPRIL [Concomitant]
     Dosage: 2.5 MG, QD
     Route: 048
  13. ZOCOR [Concomitant]
     Dosage: 20 MG, QD
     Route: 048
  14. DARVOCET-N 50 [Concomitant]
     Dosage: UNK UNK, PRN
     Route: 048
  15. EPHEDRINE [Concomitant]
     Dosage: 5 MG, UNK
     Route: 042
     Dates: start: 20070517, end: 20070517
  16. ISORBIDE [Concomitant]
     Dosage: 20 MG, TID
     Route: 048
  17. HEPARIN [Concomitant]
     Dosage: 25000 U, UNK
     Route: 042
     Dates: start: 20070517, end: 20070517
  18. TRASYLOL [Suspect]
     Indication: CORONARY ARTERY BYPASS
     Dosage: 200 ML, UNK
     Route: 042
     Dates: start: 20070517, end: 20070517
  19. SPIRONOLACTONE [Concomitant]
     Dosage: 25 MG, QD
     Route: 048
  20. PROTONIX [Concomitant]
     Dosage: 40 MG, QD
     Route: 048
  21. DOBUTAMINE HCL [Concomitant]
     Dosage: UNK
     Route: 042
     Dates: start: 20070517, end: 20070517
  22. PLATELETS [Concomitant]
     Dosage: UNK
     Dates: start: 20070517
  23. ALLOPURINOL [Concomitant]
     Dosage: 300 MG, QD
     Route: 048
  24. FOLTX [Concomitant]
     Dosage: 10 MG, QD
     Route: 048
  25. METOPROLOL [Concomitant]
     Dosage: 25 MG, TID
     Route: 048
  26. AMITRIPTYLINE [Concomitant]
     Dosage: 25 MG, QD
     Route: 048
  27. FERROUS SULFATE TAB [Concomitant]
     Dosage: 325 MG, QD
     Route: 048
  28. PROTAMINE SULFATE [Concomitant]
     Dosage: 300 MG, UNK
     Route: 042
     Dates: start: 20070517, end: 20070517
  29. MIDAZOLAM [Concomitant]
     Dosage: 10 MG, UNK
     Route: 042
     Dates: start: 20070517, end: 20070517
  30. LASIX [Concomitant]
     Dosage: 40 MG, QD
     Route: 048
  31. METFORMIN [Concomitant]
     Dosage: 1000 MG, BID
     Route: 048
  32. COREG [Concomitant]
     Dosage: 3.125 MG, BID
     Route: 048
  33. LEXAPRO [Concomitant]
     Dosage: 10 MG, QD
     Route: 048

REACTIONS (12)
  - FEAR [None]
  - PAIN [None]
  - UNEVALUABLE EVENT [None]
  - MULTI-ORGAN FAILURE [None]
  - RENAL FAILURE [None]
  - RENAL INJURY [None]
  - DEATH [None]
  - RENAL IMPAIRMENT [None]
  - EMOTIONAL DISTRESS [None]
  - ANXIETY [None]
  - INJURY [None]
  - STRESS [None]
